FAERS Safety Report 6416083-3 (Version None)
Quarter: 2009Q4

REPORT INFORMATION
  Report Type: 
  Country: None (occurrence: None)
  Receive Date: 20091027
  Receipt Date: 20091021
  Transmission Date: 20100525
  Serious: Yes (Hospitalization, Other)
  Sender: FDA-Public Use
  Company Number: JP-BAYER-200914000BYL

PATIENT
  Age: 75 Year
  Sex: Male

DRUGS (3)
  1. NEXAVAR [Suspect]
     Indication: HEPATIC NEOPLASM MALIGNANT
     Route: 048
     Dates: end: 20091001
  2. NEXAVAR [Suspect]
     Dosage: UNIT DOSE: 200 MG
     Route: 048
     Dates: start: 20090730
  3. NARCOTICS [Suspect]
     Indication: METASTASES TO BONE
     Route: 065

REACTIONS (4)
  - FATIGUE [None]
  - HEPATIC NEOPLASM MALIGNANT [None]
  - ILEUS [None]
  - NAUSEA [None]
